FAERS Safety Report 13162129 (Version 1)
Quarter: 2017Q1

REPORT INFORMATION
  Report Type: Spontaneous
  Country: US (occurrence: US)
  Receive Date: 20170130
  Receipt Date: 20170130
  Transmission Date: 20170428
  Serious: No
  Sender: FDA-Public Use
  Company Number: US-PFIZER INC-2017038763

PATIENT
  Sex: Female

DRUGS (1)
  1. XELJANZ [Suspect]
     Active Substance: TOFACITINIB CITRATE
     Dosage: 5 MG, 2X/DAY

REACTIONS (8)
  - Joint swelling [Unknown]
  - Musculoskeletal pain [Unknown]
  - Stomatitis [Unknown]
  - Herpes simplex [Unknown]
  - Muscle spasms [Unknown]
  - Ulcer [Unknown]
  - Upper respiratory tract infection [Recovered/Resolved]
  - Swelling [Unknown]
